FAERS Safety Report 5280585-6 (Version None)
Quarter: 2007Q1

REPORT INFORMATION
  Report Type: 
  Country: None (occurrence: None)
  Receive Date: 20061229
  Receipt Date: 20060720
  Transmission Date: 20070707
  Serious: Yes (Other)
  Sender: FDA-Public Use
  Company Number: 2006UW14553

PATIENT
  Age: 57 Year
  Sex: Male
  Weight: 72.574 kg

DRUGS (5)
  1. TOPROL-XL [Suspect]
     Dosage: 50 MG DAILY PO
     Route: 048
  2. CRESTOR [Suspect]
     Dosage: 20 MG QD PO
     Route: 048
  3. CRESTOR [Suspect]
     Dosage: 40 MG QD PO
     Route: 048
  4. ASPIRIN [Concomitant]
  5. INSULIN [Concomitant]

REACTIONS (1)
  - HYPOGLYCAEMIA [None]
